FAERS Safety Report 6438484-X (Version None)
Quarter: 2009Q4

REPORT INFORMATION
  Report Type: 
  Country: None (occurrence: None)
  Receive Date: 20091112
  Receipt Date: 20091104
  Transmission Date: 20100525
  Serious: Yes (Hospitalization)
  Sender: FDA-Public Use
  Company Number: BR-ABBOTT-09P-020-0557951-00

PATIENT
  Sex: Male
  Weight: 90 kg

DRUGS (7)
  1. HUMIRA [Suspect]
     Indication: RHEUMATOID ARTHRITIS
     Route: 058
     Dates: end: 20081215
  2. CLOBETASOL PROPIONATE [Concomitant]
     Indication: PSORIASIS
  3. CLOBETASOL PROPIONATE [Concomitant]
  4. UNKNOWN SHAMPOO [Concomitant]
     Indication: PSORIASIS
  5. METHOTREXATE [Concomitant]
     Indication: RHEUMATOID ARTHRITIS
     Dosage: FORM STRENGTH 50 MG, WEEKLY
     Route: 058
     Dates: start: 20081001, end: 20081201
  6. SPIRONOLACTONE [Concomitant]
     Indication: GASTRIC DISORDER
     Dosage: FORM STRENGTH 50 MG
     Route: 048
     Dates: start: 20090301
  7. OMEPRAZOLE [Concomitant]
     Indication: GASTRIC DISORDER
     Route: 048
     Dates: start: 20090301

REACTIONS (18)
  - ABDOMINAL PAIN UPPER [None]
  - ANAEMIA [None]
  - ASTHENIA [None]
  - DEHYDRATION [None]
  - HEPATIC INFECTION [None]
  - HYPOPHAGIA [None]
  - INFECTION [None]
  - KIDNEY INFECTION [None]
  - LIVER DISORDER [None]
  - LOCALISED INFECTION [None]
  - NEPHROLITHIASIS [None]
  - PAIN IN EXTREMITY [None]
  - PNEUMONIA [None]
  - POISONING [None]
  - PYREXIA [None]
  - RENAL COLIC [None]
  - VOMITING [None]
  - WEIGHT DECREASED [None]
